FAERS Safety Report 7368055-2 (Version None)
Quarter: 2011Q1

REPORT INFORMATION
  Report Type: 
  Country: None (occurrence: None)
  Receive Date: 20110323
  Receipt Date: 20110315
  Transmission Date: 20110831
  Serious: Yes (Hospitalization)
  Sender: FDA-Public Use
  Company Number: US-BIOGENIDEC-2011BI005773

PATIENT
  Sex: Male

DRUGS (4)
  1. AVONEX [Concomitant]
     Indication: MULTIPLE SCLEROSIS
     Route: 030
     Dates: start: 20020104
  2. AVONEX [Concomitant]
     Route: 030
  3. TYSABRI [Suspect]
     Indication: MULTIPLE SCLEROSIS
     Route: 042
     Dates: start: 20081105
  4. TYSABRI [Suspect]
     Route: 042
     Dates: start: 20070605, end: 20080408

REACTIONS (5)
  - COUGH [None]
  - PERIPHERAL COLDNESS [None]
  - OEDEMA PERIPHERAL [None]
  - SURGERY [None]
  - MITRAL VALVE PROLAPSE [None]
